FAERS Safety Report 22036003 (Version 1)
Quarter: 2023Q1

REPORT INFORMATION
  Report Type: Spontaneous
  Country: US (occurrence: None)
  Receive Date: 20230220
  Receipt Date: 20230220
  Transmission Date: 20230417
  Serious: Yes (Other)
  Sender: FDA-Public Use
  Company Number: None

PATIENT
  Age: 60 Year
  Sex: 0
  Weight: 65.25 kg

DRUGS (2)
  1. AVOBENZONE [Suspect]
     Active Substance: AVOBENZONE
     Indication: Prophylaxis against solar radiation
  2. VITAMINS [Concomitant]
     Active Substance: VITAMINS

REACTIONS (3)
  - Skin burning sensation [None]
  - Application site reaction [None]
  - Sunburn [None]

NARRATIVE: CASE EVENT DATE: 20150201
